FAERS Safety Report 5930168-7 (Version None)
Quarter: 2008Q4

REPORT INFORMATION
  Report Type: 
  Country: None (occurrence: None)
  Receive Date: 20081024
  Receipt Date: 20081014
  Transmission Date: 20090506
  Serious: Yes (Other)
  Sender: FDA-Public Use
  Company Number: US-PFIZER INC-2008086769

PATIENT
  Sex: Female
  Weight: 52.272 kg

DRUGS (3)
  1. CHANTIX [Suspect]
     Indication: SMOKING CESSATION THERAPY
     Dates: start: 20080701
  2. ANTIMIGRAINE PREPARATIONS [Concomitant]
  3. ALL OTHER THERAPEUTIC PRODUCTS [Concomitant]

REACTIONS (4)
  - ANXIETY [None]
  - DYSPNOEA [None]
  - LUNG DISORDER [None]
  - PHARYNGEAL OEDEMA [None]
